FAERS Safety Report 15849396 (Version 3)
Quarter: 2019Q1

REPORT INFORMATION
  Report Type: Report from Study
  Country: ZA (occurrence: ZA)
  Receive Date: 20190121
  Receipt Date: 20190318
  Transmission Date: 20190417
  Serious: Yes (Life-Threatening, Hospitalization)
  Sender: FDA-Public Use
  Company Number: ZA-SA-2018SA317112

PATIENT
  Age: 60 Year
  Sex: Male

DRUGS (8)
  1. GLUCOPHAGE [Concomitant]
     Active Substance: METFORMIN HYDROCHLORIDE
     Dosage: 500 MG, BID (BEFORE BREAKFAST, BEFORE SUPPER)
     Dates: start: 20080301
  2. OPTISULIN (INSULIN GLARGINE) [Suspect]
     Active Substance: INSULIN GLARGINE
     Dosage: 38 U, HS
     Dates: start: 20181109
  3. HUMALOG [Concomitant]
     Active Substance: INSULIN LISPRO
     Dosage: 8 U, TID (BEFORE BREAKFAST, BEFORE LUNCH,BEFORE SUPPER)
     Dates: start: 20180910
  4. HUMALOG [Concomitant]
     Active Substance: INSULIN LISPRO
     Dosage: 38 U, BID
     Dates: start: 20181110
  5. OPTISULIN (INSULIN GLARGINE) [Suspect]
     Active Substance: INSULIN GLARGINE
     Dosage: 40 U, HS
     Dates: start: 20181109
  6. OPTISULIN (INSULIN GLARGINE) [Suspect]
     Active Substance: INSULIN GLARGINE
     Dosage: 41 U, HS
     Dates: start: 20181110
  7. OPTISULIN (INSULIN GLARGINE) [Suspect]
     Active Substance: INSULIN GLARGINE
     Dosage: 10 U, HS
     Dates: start: 20181110
  8. NO STUDY DRUG GIVEN [Suspect]
     Active Substance: UNSPECIFIED INGREDIENT
     Dosage: UNK

REACTIONS (7)
  - Glycosylated haemoglobin increased [Unknown]
  - Bronchitis [Not Recovered/Not Resolved]
  - Chest discomfort [Not Recovered/Not Resolved]
  - Sinus disorder [Not Recovered/Not Resolved]
  - Product dose omission [Unknown]
  - Blood glucose decreased [Unknown]
  - Nasopharyngitis [Not Recovered/Not Resolved]

NARRATIVE: CASE EVENT DATE: 20181212
